FAERS Safety Report 7958327-2 (Version None)
Quarter: 2011Q4

REPORT INFORMATION
  Report Type: 
  Country: None (occurrence: None)
  Receive Date: 20111205
  Receipt Date: 20111201
  Transmission Date: 20120403
  Serious: Yes (Death, Hospitalization)
  Sender: FDA-Public Use
  Company Number: US-ACTELION-A-US2011-53840

PATIENT

DRUGS (6)
  1. LANOXIN [Concomitant]
  2. REVATIO [Concomitant]
  3. CALCIUM CHANNEL BLOCKERS [Concomitant]
  4. MULTAQ [Concomitant]
  5. TRACLEER [Suspect]
     Indication: PULMONARY ARTERIAL HYPERTENSION
     Dosage: UNK
     Route: 048
     Dates: start: 20030905, end: 20111029
  6. COUMADIN [Concomitant]

REACTIONS (2)
  - RESPIRATORY FAILURE [None]
  - CEREBROVASCULAR ACCIDENT [None]
